FAERS Safety Report 7593763-8 (Version None)
Quarter: 2011Q3

REPORT INFORMATION
  Report Type: 
  Country: None (occurrence: None)
  Receive Date: 20110706
  Receipt Date: 20110627
  Transmission Date: 20111222
  Serious: Yes (Death)
  Sender: FDA-Public Use
  Company Number: DE-UCBSA-035524

PATIENT
  Sex: Female

DRUGS (3)
  1. METHOTREXATE [Concomitant]
     Indication: RHEUMATOID ARTHRITIS
     Route: 058
     Dates: start: 19981027
  2. METHOTREXATE [Concomitant]
     Route: 058
     Dates: end: 20110425
  3. CERTOLIZUMAB PEGOL [Suspect]
     Indication: RHEUMATOID ARTHRITIS
     Route: 058
     Dates: start: 20110110, end: 20110101

REACTIONS (1)
  - PNEUMOCOCCAL SEPSIS [None]
